FAERS Safety Report 24895705 (Version 1)
Quarter: 2025Q1

REPORT INFORMATION
  Report Type: Spontaneous
  Country: US (occurrence: US)
  Receive Date: 20250128
  Receipt Date: 20250128
  Transmission Date: 20250409
  Serious: No
  Sender: PFIZER
  Company Number: US-PFIZER INC-202500017686

PATIENT
  Age: 16 Year
  Sex: Male

DRUGS (3)
  1. LITFULO [Suspect]
     Active Substance: RITLECITINIB TOSYLATE
     Dosage: 50 MG, DAILY
     Route: 048
     Dates: start: 20230826
  2. CHLOREX-A [CHLORPHENAMINE MALEATE;PHENYLEPHRINE HYDROCHLORIDE;PHENYLTO [Concomitant]
  3. TRETINOIN [Concomitant]
     Active Substance: TRETINOIN

REACTIONS (1)
  - Therapeutic product effect incomplete [Unknown]
